FAERS Safety Report 23744947 (Version 1)
Quarter: 2024Q2

REPORT INFORMATION
  Report Type: Spontaneous
  Country: FR (occurrence: FR)
  Receive Date: 20240415
  Receipt Date: 20240415
  Transmission Date: 20240716
  Serious: Yes (Other)
  Sender: FDA-Public Use
  Company Number: None

PATIENT
  Age: 32 Year
  Sex: Male
  Weight: 70 kg

DRUGS (2)
  1. TYSABRI [Suspect]
     Active Substance: NATALIZUMAB
     Indication: Relapsing-remitting multiple sclerosis
     Dosage: CYCLE: 300 MG IN ONE INJECTION
     Route: 050
     Dates: start: 20240201, end: 20240201
  2. TYSABRI [Suspect]
     Active Substance: NATALIZUMAB
     Dosage: CYCLE: 300 MG IN ONE INJECTION
     Route: 050
     Dates: start: 20240229, end: 20240229

REACTIONS (1)
  - Hypersensitivity [Recovered/Resolved]

NARRATIVE: CASE EVENT DATE: 20240229
